FAERS Safety Report 5843084-6 (Version None)
Quarter: 2008Q3

REPORT INFORMATION
  Report Type: 
  Country: None (occurrence: None)
  Receive Date: 20080813
  Receipt Date: 20080807
  Transmission Date: 20090109
  Serious: Yes (Other)
  Sender: FDA-Public Use
  Company Number: US-ROCHE-574811

PATIENT
  Sex: Male

DRUGS (1)
  1. ISOTRETINOIN [Suspect]
     Indication: ACNE
     Dosage: THE PATIENT WAS DISPENSED ACCUTANE 40 MG CAPSULE ON 3 JUNE 2008
     Route: 048
     Dates: start: 20080603, end: 20080707

REACTIONS (1)
  - BIPOLAR I DISORDER [None]
